FAERS Safety Report 4285873-8 (Version None)
Quarter: 2004Q1

REPORT INFORMATION
  Report Type: 
  Country: None (occurrence: None)
  Receive Date: 20040203
  Receipt Date: 20040123
  Transmission Date: 20041129
  Serious: Yes (Life-Threatening, Hospitalization)
  Sender: FDA-Public Use
  Company Number: GB-JNJFOC-20031102370

PATIENT
  Age: 55 Year
  Sex: Female
  Weight: 88.905 kg

DRUGS (2)
  1. RISPERDAL [Suspect]
     Indication: SCHIZOAFFECTIVE DISORDER
     Dosage: 6 MG, IN 1 DAY, ORAL
     Route: 048
     Dates: start: 20030801
  2. DEPAKOTE [Suspect]
     Indication: BIPOLAR DISORDER
     Dosage: 500 MG, 3 IN 1 DAY
     Dates: start: 20031023, end: 20031123

REACTIONS (3)
  - DIALYSIS [None]
  - LOWER RESPIRATORY TRACT INFECTION [None]
  - RENAL FAILURE ACUTE [None]
